FAERS Safety Report 4728600-X (Version None)
Quarter: 2005Q3

REPORT INFORMATION
  Report Type: 
  Country: None (occurrence: None)
  Receive Date: 20050727
  Receipt Date: 20050715
  Transmission Date: 20060218
  Serious: Yes (Hospitalization, Other)
  Sender: FDA-Public Use
  Company Number: 11847

PATIENT
  Age: 38 Year
  Sex: Male

DRUGS (5)
  1. CYTARABINE [Suspect]
     Indication: ACUTE MYELOID LEUKAEMIA RECURRENT
     Dosage: 100 MG/M2
  2. IDARUBICIN HCL [Suspect]
     Dosage: 12 MG/M2
  3. ALLOPURINOL [Suspect]
     Indication: PROPHYLAXIS
  4. AZITHROMYCIN [Concomitant]
  5. CIPROFLOXACIN [Concomitant]

REACTIONS (4)
  - ERYTHEMA [None]
  - FEBRILE NEUTROPENIA [None]
  - HIDRADENITIS [None]
  - RASH MACULAR [None]
